FAERS Safety Report 7994125 (Version 20)
Quarter: 2016Q4

REPORT INFORMATION
  Report Type: Spontaneous
  Country: CA (occurrence: CA)
  Receive Date: 20110616
  Receipt Date: 20161019
  Transmission Date: 20170207
  Serious: Yes (Hospitalization, Other)
  Sender: FDA-Public Use
  Company Number: CA-ROCHE-GNE319969

PATIENT
  Age: 72 Year
  Sex: Female
  Weight: 66 kg

DRUGS (14)
  1. PREDNISONE. [Concomitant]
     Active Substance: PREDNISONE
     Indication: PRODUCT USED FOR UNKNOWN INDICATION
     Dosage: 2 DF, QD
     Route: 065
  2. XOLAIR [Suspect]
     Active Substance: OMALIZUMAB
     Indication: ASTHMA
     Dosage: 150 MG, EVERY 4 WEEKS
     Route: 058
     Dates: start: 20061011
  3. SPIRIVA [Concomitant]
     Active Substance: TIOTROPIUM BROMIDE MONOHYDRATE
     Indication: PRODUCT USED FOR UNKNOWN INDICATION
     Route: 065
  4. PREDNISONE. [Concomitant]
     Active Substance: PREDNISONE
     Dosage: 50 MG, UNK (ONE-TIME DOSE)
     Route: 065
  5. PREDNISONE. [Concomitant]
     Active Substance: PREDNISONE
     Dosage: 50 MG, UNK (ONE-TIME DOSE)
     Route: 065
     Dates: start: 20160519
  6. XOLAIR [Suspect]
     Active Substance: OMALIZUMAB
     Dosage: UNK
     Route: 058
     Dates: start: 20160415
  7. XOLAIR [Suspect]
     Active Substance: OMALIZUMAB
     Dosage: UNK
     Route: 058
     Dates: start: 20160921
  8. XOLAIR [Suspect]
     Active Substance: OMALIZUMAB
     Dosage: UNK
     Route: 058
     Dates: start: 20160122
  9. UNIPHYL [Concomitant]
     Active Substance: THEOPHYLLINE ANHYDROUS
     Indication: PRODUCT USED FOR UNKNOWN INDICATION
     Route: 065
  10. CIPROFLOXACIN. [Concomitant]
     Active Substance: CIPROFLOXACIN
     Indication: PRODUCT USED FOR UNKNOWN INDICATION
     Dosage: 500 MG, BID
     Route: 065
  11. SYMBICORT [Concomitant]
     Active Substance: BUDESONIDE\FORMOTEROL FUMARATE DIHYDRATE
     Indication: PRODUCT USED FOR UNKNOWN INDICATION
     Route: 065
  12. ADVAIR HFA [Concomitant]
     Active Substance: FLUTICASONE PROPIONATE\SALMETEROL XINAFOATE
     Indication: PRODUCT USED FOR UNKNOWN INDICATION
     Dosage: 2 DF, BIW
     Route: 065
  13. METRONIDAZOLE. [Concomitant]
     Active Substance: METRONIDAZOLE
     Indication: PRODUCT USED FOR UNKNOWN INDICATION
     Dosage: 500 MG, BID
     Route: 065
  14. VENTOLIN [Concomitant]
     Active Substance: ALBUTEROL SULFATE
     Indication: PRODUCT USED FOR UNKNOWN INDICATION
     Route: 065

REACTIONS (35)
  - Nosocomial infection [Unknown]
  - Dyspepsia [Unknown]
  - Infection [Unknown]
  - Social problem [Unknown]
  - Fall [Unknown]
  - Lung disorder [Unknown]
  - Vomiting [Unknown]
  - Escherichia infection [Unknown]
  - Feeling abnormal [Unknown]
  - Abdominal discomfort [Unknown]
  - Wheezing [Unknown]
  - Gastrooesophageal reflux disease [Recovering/Resolving]
  - Gait disturbance [Unknown]
  - Eating disorder [Unknown]
  - Weight decreased [Recovering/Resolving]
  - Loss of consciousness [Unknown]
  - Dyspnoea [Unknown]
  - Cough [Recovering/Resolving]
  - Pyrexia [Unknown]
  - General physical condition abnormal [Unknown]
  - Osteoarthritis [Unknown]
  - Diverticulitis [Unknown]
  - Arthritis [Recovering/Resolving]
  - Decreased interest [Unknown]
  - Asthenia [Unknown]
  - Malaise [Unknown]
  - Fear [Unknown]
  - Gastroenteritis viral [Unknown]
  - Abscess [Recovered/Resolved]
  - Bone disorder [Unknown]
  - Pain [Unknown]
  - Torticollis [Unknown]
  - Decreased appetite [Unknown]
  - Chest discomfort [Unknown]
  - Mobility decreased [Unknown]

NARRATIVE: CASE EVENT DATE: 20090827
